FAERS Safety Report 16478447 (Version 2)
Quarter: 2019Q3

REPORT INFORMATION
  Report Type: Spontaneous
  Country: IT (occurrence: IT)
  Receive Date: 20190626
  Receipt Date: 20190715
  Transmission Date: 20191004
  Serious: Yes (Death, Hospitalization, Other)
  Sender: FDA-Public Use
  Company Number: IT-INCYTE CORPORATION-2019IN006041

PATIENT

DRUGS (2)
  1. JAKAVI [Suspect]
     Active Substance: RUXOLITINIB
     Indication: PRIMARY MYELOFIBROSIS
     Dosage: 20 MG, QD
     Route: 065
  2. JAKAVI [Suspect]
     Active Substance: RUXOLITINIB
     Dosage: 20 MG, BID
     Route: 065

REACTIONS (13)
  - Pneumonia [Fatal]
  - Acute respiratory failure [Unknown]
  - Blood urea increased [Unknown]
  - Chronic kidney disease [Fatal]
  - Listeriosis [Fatal]
  - Lymphocyte count increased [Unknown]
  - Multiple organ dysfunction syndrome [Unknown]
  - Leukocytosis [Unknown]
  - Respiratory failure [Fatal]
  - Splenomegaly [Unknown]
  - Lymphadenopathy [Fatal]
  - Neutrophilia [Unknown]
  - Listeria sepsis [Unknown]

NARRATIVE: CASE EVENT DATE: 201901
